FAERS Safety Report 21448458 (Version 9)
Quarter: 2024Q2

REPORT INFORMATION
  Report Type: Report from Study
  Country: US (occurrence: US)
  Receive Date: 20221013
  Receipt Date: 20240501
  Transmission Date: 20240716
  Serious: Yes (Other)
  Sender: FDA-Public Use
  Company Number: US-ABBVIE-4151278

PATIENT
  Sex: Male

DRUGS (1)
  1. IMBRUVICA [Suspect]
     Active Substance: IBRUTINIB
     Indication: Myelodysplastic syndrome
     Route: 048

REACTIONS (17)
  - Epilepsy [Not Recovered/Not Resolved]
  - Back pain [Unknown]
  - Muscle spasms [Not Recovered/Not Resolved]
  - Fall [Unknown]
  - Muscle tightness [Not Recovered/Not Resolved]
  - Tinnitus [Unknown]
  - Sleep disorder [Not Recovered/Not Resolved]
  - Contusion [Not Recovered/Not Resolved]
  - Hot flush [Not Recovered/Not Resolved]
  - Pain [Not Recovered/Not Resolved]
  - Skin warm [Not Recovered/Not Resolved]
  - Muscle strain [Not Recovered/Not Resolved]
  - Spinal fracture [Not Recovered/Not Resolved]
  - Increased tendency to bruise [Unknown]
  - Myalgia [Unknown]
  - Night sweats [Not Recovered/Not Resolved]
  - Asthenia [Unknown]

NARRATIVE: CASE EVENT DATE: 20230101
